FAERS Safety Report 7382730-5 (Version None)
Quarter: 2011Q1

REPORT INFORMATION
  Report Type: 
  Country: None (occurrence: None)
  Receive Date: 20110330
  Receipt Date: 20110321
  Transmission Date: 20110831
  Serious: No
  Sender: FDA-Public Use
  Company Number: US-BIOGENIDEC-2010BI042927

PATIENT
  Sex: Female

DRUGS (1)
  1. TYSABRI [Suspect]
     Indication: MULTIPLE SCLEROSIS
     Route: 042
     Dates: start: 20080904, end: 20101011

REACTIONS (7)
  - NEUTRALISING ANTIBODIES POSITIVE [None]
  - CONCUSSION [None]
  - JC VIRUS TEST POSITIVE [None]
  - T-LYMPHOCYTE COUNT DECREASED [None]
  - CD4 LYMPHOCYTES DECREASED [None]
  - FALL [None]
  - FATIGUE [None]
